FAERS Safety Report 7450025-7 (Version None)
Quarter: 2011Q2

REPORT INFORMATION
  Report Type: 
  Country: None (occurrence: None)
  Receive Date: 20110502
  Receipt Date: 20080728
  Transmission Date: 20111010
  Serious: Yes (Death, Other)
  Sender: FDA-Public Use
  Company Number: US-BAYER-200829492NA

PATIENT
  Age: 72 Year
  Sex: Male

DRUGS (9)
  1. TRASYLOL [Suspect]
     Dosage: 200 ML LOADING DOSE FOLLOWED BY 25 ML / HOUR DRIP
     Dates: start: 20011010, end: 20011010
  2. ASPIRIN [Concomitant]
     Dosage: 81 MG, UNK
     Route: 048
     Dates: end: 20011001
  3. ZOCOR [Concomitant]
     Dosage: 20 MG, QD
     Route: 048
     Dates: end: 20011001
  4. NITROGLYCERIN [Concomitant]
     Dosage: 2 TABLETS
     Route: 060
     Dates: start: 20011008
  5. NORVASC [Concomitant]
     Dosage: 5 MG, QD
     Route: 048
     Dates: end: 20011001
  6. TRASYLOL [Suspect]
     Indication: CORONARY ARTERY BYPASS
     Dosage: 0.5 ML TEST DOSE
     Dates: start: 20011010, end: 20011010
  7. MONOPRIL [Concomitant]
     Dosage: 40 MG, QD
     Route: 048
     Dates: end: 20011001
  8. HEPARIN [Concomitant]
     Dosage: 36000 U, UNK
     Route: 042
     Dates: start: 20011010
  9. METOPROLOL SUCCINATE [Concomitant]
     Dosage: 25 MG, BID
     Route: 048
     Dates: end: 20011001

REACTIONS (11)
  - FEAR [None]
  - RENAL IMPAIRMENT [None]
  - RENAL FAILURE [None]
  - RENAL INJURY [None]
  - ANXIETY [None]
  - ANHEDONIA [None]
  - DEATH [None]
  - UNEVALUABLE EVENT [None]
  - PAIN [None]
  - STRESS [None]
  - INJURY [None]
